FAERS Safety Report 22388583 (Version 1)
Quarter: 2023Q2

REPORT INFORMATION
  Report Type: Spontaneous
  Country: US (occurrence: None)
  Receive Date: 20230530
  Receipt Date: 20230530
  Transmission Date: 20230722
  Serious: No
  Sender: FDA-Public Use
  Company Number: None

PATIENT

DRUGS (13)
  1. ERLEADA [Suspect]
     Active Substance: APALUTAMIDE
     Indication: Prostate cancer
     Dosage: OTHER QUANTITY : 1T;?FREQUENCY : DAILY;?
     Route: 048
  2. ASCORBIC ACID [Concomitant]
     Active Substance: ASCORBIC ACID
  3. spirulina [Concomitant]
  4. VITAMIN D3 [Concomitant]
     Active Substance: CHOLECALCIFEROL
  5. ECHINACEA [Concomitant]
     Active Substance: ECHINACEA, UNSPECIFIED
  6. multivitamin [Concomitant]
  7. golyely [Concomitant]
  8. turmeric [Concomitant]
  9. CASODEX [Concomitant]
     Active Substance: BICALUTAMIDE
  10. OXYBUTYNIN [Concomitant]
  11. PHENAZOPYRIDINE [Concomitant]
  12. TRAMADOL [Concomitant]
  13. TYLENOL EXTRA STRENGTH [Concomitant]
     Active Substance: ACETAMINOPHEN

REACTIONS (1)
  - Prostate cancer [None]
